FAERS Safety Report 8413468 (Version 5)
Quarter: 2012Q4

REPORT INFORMATION
  Report Type: 
  Country: US (occurrence: US)
  Receive Date: 20120217
  Receipt Date: 20121126
  Transmission Date: 20130627
  Serious: Yes (Other)
  Sender: FDA-Public Use
  Company Number: US-ASTRAZENECA-2012SE08894

PATIENT
  Age: 54 Year
  Sex: Female
  Weight: 83.9 kg

DRUGS (12)
  1. SEROQUEL XR [Suspect]
     Indication: BIPOLAR DISORDER
     Route: 048
     Dates: start: 2004
  2. SEROQUEL XR [Suspect]
     Indication: BIPOLAR I DISORDER
     Route: 048
     Dates: start: 2004
  3. SEROQUEL XR [Suspect]
     Indication: BIPOLAR DISORDER
     Route: 048
     Dates: start: 2012
  4. SEROQUEL XR [Suspect]
     Indication: BIPOLAR I DISORDER
     Route: 048
     Dates: start: 2012
  5. SEROQUEL XR [Suspect]
     Indication: BIPOLAR DISORDER
     Route: 048
  6. SEROQUEL XR [Suspect]
     Indication: BIPOLAR I DISORDER
     Route: 048
  7. LISINOPRIL HCTZ [Concomitant]
     Indication: BLOOD PRESSURE INCREASED
     Dosage: 10/12.5 MG DAILY
     Route: 048
  8. PERCOCET [Concomitant]
     Dosage: 10/325 MG BID
  9. DURAGESIC [Concomitant]
     Dosage: 50 MG EVERY 3 DAYS ONCE
  10. DIAZEPAM [Concomitant]
     Dosage: 5 MG BID
  11. SIMVASTATIN [Concomitant]
  12. LEVOTHYROXINE [Concomitant]

REACTIONS (12)
  - Verbal abuse [Unknown]
  - Aggression [Unknown]
  - Anxiety [Unknown]
  - Thinking abnormal [Unknown]
  - Psychotic disorder [Unknown]
  - Panic attack [Unknown]
  - Memory impairment [Unknown]
  - Insomnia [Unknown]
  - Lethargy [Unknown]
  - Dizziness [Unknown]
  - Intentional drug misuse [Unknown]
  - Off label use [Unknown]
